FAERS Safety Report 14571644 (Version 1)
Quarter: 2018Q1

REPORT INFORMATION
  Report Type: Spontaneous
  Country: US (occurrence: US)
  Receive Date: 20180226
  Receipt Date: 20180226
  Transmission Date: 20180509
  Serious: No
  Sender: FDA-Public Use
  Company Number: US-PFIZER INC-2018077195

PATIENT
  Sex: Female

DRUGS (3)
  1. VICODIN [Suspect]
     Active Substance: ACETAMINOPHEN\HYDROCODONE BITARTRATE
     Dosage: UNK
  2. LYRICA [Suspect]
     Active Substance: PREGABALIN
     Indication: FIBROMYALGIA
     Dosage: 225 MG, UNK
  3. LYRICA [Suspect]
     Active Substance: PREGABALIN
     Indication: SPINAL CORD INJURY
     Dosage: 150 MG, UNK

REACTIONS (4)
  - Drug dose omission [Unknown]
  - Pain in extremity [Recovering/Resolving]
  - Feeling abnormal [Unknown]
  - Visual impairment [Unknown]

NARRATIVE: CASE EVENT DATE: 201802
